FAERS Safety Report 12155419 (Version 1)
Quarter: 2016Q1

REPORT INFORMATION
  Report Type: Spontaneous
  Country: IT (occurrence: IT)
  Receive Date: 20160307
  Receipt Date: 20160307
  Transmission Date: 20160526
  Serious: Yes (Other)
  Sender: FDA-Public Use
  Company Number: IT-CHARTWELL LIFE SCIENCE LLC-2016CHA00004

PATIENT
  Age: 26 Year
  Sex: Male

DRUGS (3)
  1. UNSPECIFIED INTRAVENOUS FLUIDS [Concomitant]
  2. PARACETAMOL [Concomitant]
     Active Substance: ACETAMINOPHEN
  3. DOXYCYCLINE. [Suspect]
     Active Substance: DOXYCYCLINE
     Indication: RELAPSING FEVER

REACTIONS (1)
  - Jarisch-Herxheimer reaction [Unknown]
